FAERS Safety Report 9732469 (Version 1)
Quarter: 2013Q4

REPORT INFORMATION
  Report Type: Spontaneous
  Country: US (occurrence: None)
  Receive Date: 20131204
  Receipt Date: 20131204
  Transmission Date: 20140711
  Serious: Yes (Other)
  Sender: FDA-Public Use
  Company Number: None

PATIENT
  Age: 54 Year
  Sex: 0
  Weight: 48.99 kg

DRUGS (3)
  1. METHYLPREDNISONE [Suspect]
  2. LEVAQUIN [Suspect]
  3. METHYLPREDNISONE [Concomitant]

REACTIONS (3)
  - Chronic obstructive pulmonary disease [None]
  - Malaise [None]
  - Movement disorder [None]
